FAERS Safety Report 15353375 (Version 1)
Quarter: 2018Q3

REPORT INFORMATION
  Report Type: Spontaneous
  Country: FR (occurrence: FR)
  Receive Date: 20180905
  Receipt Date: 20180905
  Transmission Date: 20181010
  Serious: Yes (Hospitalization, Other)
  Sender: FDA-Public Use
  Company Number: FR-PFIZER INC-2006014314

PATIENT
  Age: 98 Year
  Sex: Female

DRUGS (8)
  1. LOXEN [Concomitant]
     Dosage: UNK
     Route: 048
  2. SPECIAFOLDINE [Suspect]
     Active Substance: FOLIC ACID
     Dosage: UNK
     Route: 048
     Dates: start: 20050718, end: 20050808
  3. CACIT D3 [Suspect]
     Active Substance: CALCIUM\CHOLECALCIFEROL
     Dosage: 1000 MG, QD
     Route: 048
     Dates: start: 20050729, end: 20050808
  4. RACECADOTRIL [Suspect]
     Active Substance: RACECADOTRIL
     Dosage: UNK
     Route: 048
     Dates: start: 20050726, end: 20050805
  5. TIORFAN [Suspect]
     Active Substance: RACECADOTRIL
     Route: 048
     Dates: start: 20050726, end: 20050805
  6. FORLAX [Concomitant]
     Active Substance: POLYETHYLENE GLYCOL 4000
     Dosage: UNK
     Route: 048
     Dates: end: 20050808
  7. TAHOR [Suspect]
     Active Substance: ATORVASTATIN CALCIUM
     Dosage: UNK
     Route: 048
     Dates: start: 20050718, end: 20050808
  8. INIPOMP [Suspect]
     Active Substance: PANTOPRAZOLE SODIUM
     Dosage: 40 MG, QD
     Route: 048
     Dates: start: 20050709, end: 20050808

REACTIONS (4)
  - Toxic skin eruption [Recovered/Resolved]
  - Rash papular [Recovered/Resolved]
  - Skin toxicity [Recovered/Resolved]
  - Erythema [Recovered/Resolved]

NARRATIVE: CASE EVENT DATE: 20050802
